FAERS Safety Report 22284264 (Version 1)
Quarter: 2023Q2

REPORT INFORMATION
  Report Type: Spontaneous
  Country: RU (occurrence: RU)
  Receive Date: 20230504
  Receipt Date: 20230504
  Transmission Date: 20230721
  Serious: Yes (Other)
  Sender: FDA-Public Use
  Company Number: RU-BAYER-2023A058155

PATIENT
  Age: 20 Year
  Sex: Female
  Weight: 50 kg

DRUGS (1)
  1. YAZ [Suspect]
     Active Substance: DROSPIRENONE\ETHINYL ESTRADIOL
     Indication: Contraception
     Dosage: UNK
     Route: 048
     Dates: start: 20230308

REACTIONS (1)
  - Endometrial thickening [None]
